FAERS Safety Report 20673148 (Version 1)
Quarter: 2022Q2

REPORT INFORMATION
  Report Type: Spontaneous
  Country: US (occurrence: None)
  Receive Date: 20220403
  Receipt Date: 20220403
  Transmission Date: 20220720
  Serious: Yes (Hospitalization)
  Sender: FDA-Public Use
  Company Number: None

PATIENT
  Age: 96 Year
  Sex: Male

DRUGS (1)
  1. APIXABAN [Suspect]
     Active Substance: APIXABAN
     Indication: Deep vein thrombosis
     Dosage: FREQUENCY : TWICE A DAY;?
     Route: 048
     Dates: start: 20220105, end: 20220303

REACTIONS (11)
  - Dyspnoea [None]
  - Haematuria [None]
  - Brain natriuretic peptide increased [None]
  - Pulmonary congestion [None]
  - Electrocardiogram T wave amplitude decreased [None]
  - Electrocardiogram T wave inversion [None]
  - Troponin increased [None]
  - Therapy interrupted [None]
  - Urinary tract infection [None]
  - Urinary bladder haemorrhage [None]
  - Pleural effusion [None]

NARRATIVE: CASE EVENT DATE: 20220303
